FAERS Safety Report 26135037 (Version 3)
Quarter: 2025Q4

REPORT INFORMATION
  Report Type: Spontaneous
  Country: JP (occurrence: JP)
  Receive Date: 20251209
  Receipt Date: 20251230
  Transmission Date: 20260118
  Serious: Yes (Hospitalization, Other)
  Sender: BOEHRINGER INGELHEIM
  Company Number: JP-NBI-2025-BI-111373

PATIENT
  Age: 79 Year
  Sex: Female

DRUGS (7)
  1. HERNEXEOS [Suspect]
     Active Substance: ZONGERTINIB
     Indication: HER2 mutant non-small cell lung cancer
     Dates: start: 20251128, end: 20251206
  2. HERNEXEOS [Suspect]
     Active Substance: ZONGERTINIB
     Dosage: SIMPLE SUSPENSION METHOD. ROUTE OF ADMINISTRATION: OTHER.
  3. AMLODIPINE [Concomitant]
     Active Substance: AMLODIPINE BESYLATE
     Indication: Hypertension
  4. JARDIANCE [Concomitant]
     Active Substance: EMPAGLIFLOZIN
     Indication: Diabetes mellitus
  5. LINAGLIPTIN [Concomitant]
     Active Substance: LINAGLIPTIN
     Indication: Diabetes mellitus
  6. IMEGLIMIN HYDROCHLORIDE [Concomitant]
     Active Substance: IMEGLIMIN HYDROCHLORIDE
     Indication: Diabetes mellitus
  7. MAGNESIUM OXIDE [Concomitant]
     Active Substance: MAGNESIUM OXIDE
     Indication: Product used for unknown indication

REACTIONS (10)
  - Delirium [Not Recovered/Not Resolved]
  - Pyrexia [Unknown]
  - Fluid retention [Unknown]
  - Pericardial effusion [Unknown]
  - Pleural effusion [Unknown]
  - Photophobia [Not Recovered/Not Resolved]
  - Diarrhoea [Unknown]
  - Constipation [Unknown]
  - Constipation [Unknown]
  - Wrong technique in product usage process [Unknown]

NARRATIVE: CASE EVENT DATE: 20250101
